FAERS Safety Report 25632176 (Version 2)
Quarter: 2025Q3

REPORT INFORMATION
  Report Type: Spontaneous
  Country: AU (occurrence: AU)
  Receive Date: 20250801
  Receipt Date: 20250923
  Transmission Date: 20251021
  Serious: Yes (Hospitalization)
  Sender: UCB
  Company Number: AU-UCBSA-2025046126

PATIENT
  Age: 3 Decade
  Sex: Female

DRUGS (1)
  1. BIMZELX [Suspect]
     Active Substance: BIMEKIZUMAB-BKZX
     Indication: Axial spondyloarthritis
     Dates: end: 20250724

REACTIONS (3)
  - Depressed mood [Recovered/Resolved]
  - Dissociative disorder [Recovered/Resolved]
  - Affective disorder [Recovered/Resolved]
